FAERS Safety Report 7213787-X (Version None)
Quarter: 2011Q1

REPORT INFORMATION
  Report Type: 
  Country: None (occurrence: None)
  Receive Date: 20110106
  Receipt Date: 20101229
  Transmission Date: 20110831
  Serious: Yes (Hospitalization)
  Sender: FDA-Public Use
  Company Number: US-ELI_LILLY_AND_COMPANY-US201009007520

PATIENT
  Sex: Female
  Weight: 69.161 kg

DRUGS (13)
  1. METOPROLOL [Concomitant]
     Indication: BLOOD PRESSURE
     Dosage: 100 MG, 2/D
     Route: 048
  2. AMLODIPINE [Concomitant]
     Indication: BLOOD PRESSURE
     Dosage: 10 MG, DAILY (1/D)
  3. FLONASE [Concomitant]
     Indication: RHINITIS ALLERGIC
     Dosage: UNK, DAILY (1/D)
     Route: 045
  4. BYETTA [Suspect]
     Indication: TYPE 2 DIABETES MELLITUS
     Dosage: 5 UG, 2/D
     Route: 058
     Dates: start: 20070501, end: 20080701
  5. BYETTA [Suspect]
     Dosage: 10 UG, 2/D
     Route: 058
     Dates: start: 20080701, end: 20090101
  6. BYETTA [Suspect]
     Dosage: 5 UG, 2/D
     Route: 058
     Dates: start: 20100601, end: 20100901
  7. COZAAR [Concomitant]
     Indication: CARDIAC FAILURE CONGESTIVE
     Dosage: 100 MG, DAILY (1/D)
  8. NORVASC [Concomitant]
     Indication: BLOOD PRESSURE
     Dosage: 10 MG, DAILY (1/D)
     Route: 048
  9. GLIPIZIDE [Concomitant]
     Indication: TYPE 2 DIABETES MELLITUS
     Dosage: 5 MG, DAILY (1/D)
     Route: 048
  10. GABAPENTIN [Concomitant]
     Indication: NEUROPATHY PERIPHERAL
     Dosage: 300 MG, DAILY (1/D)
     Route: 048
  11. SPIRONOLACTONE [Concomitant]
     Indication: CARDIAC FAILURE CONGESTIVE
     Dosage: 25 MG, DAILY (1/D)
     Route: 048
  12. ASPIRIN [Concomitant]
     Indication: CARDIAC DISORDER
     Dosage: 81 MG, DAILY (1/D)
     Route: 048
  13. LIPITOR [Concomitant]
     Indication: BLOOD CHOLESTEROL
     Dosage: 40 MG, DAILY (1/D)
     Route: 048

REACTIONS (7)
  - WEIGHT DECREASED [None]
  - NAUSEA [None]
  - DYSPNOEA [None]
  - ASTHMA [None]
  - RECTAL HAEMORRHAGE [None]
  - DECREASED APPETITE [None]
  - BLOOD GLUCOSE INCREASED [None]
